FAERS Safety Report 17103204 (Version 1)
Quarter: 2019Q4

REPORT INFORMATION
  Report Type: Spontaneous
  Country: US (occurrence: US)
  Receive Date: 20191202
  Receipt Date: 20191202
  Transmission Date: 20200122
  Serious: Yes (Death)
  Sender: FDA-Public Use
  Company Number: None

PATIENT
  Age: 63 Year
  Sex: Male
  Weight: 90.2 kg

DRUGS (3)
  1. ACETAMINOPHEN. [Concomitant]
     Active Substance: ACETAMINOPHEN
     Dates: start: 20190726, end: 20190726
  2. ANDEXXA [Suspect]
     Active Substance: ANDEXANET ALFA
     Indication: PROCOAGULANT THERAPY
     Dosage: ?          OTHER FREQUENCY:BOLUS/INFUSION;?
     Route: 042
     Dates: start: 20190726, end: 20190726
  3. ATORVASTATIN [Concomitant]
     Active Substance: ATORVASTATIN
     Dates: start: 20190726, end: 20190726

REACTIONS (6)
  - Heart rate increased [None]
  - Seizure [None]
  - Cerebral artery occlusion [None]
  - Obstructive airways disorder [None]
  - Lateral medullary syndrome [None]
  - Hypertension [None]

NARRATIVE: CASE EVENT DATE: 20190728
